FAERS Safety Report 4335551-1 (Version None)
Quarter: 2004Q2

REPORT INFORMATION
  Report Type: 
  Country: None (occurrence: None)
  Receive Date: 20040406
  Receipt Date: 20040326
  Transmission Date: 20050107
  Serious: Yes (Other)
  Sender: FDA-Public Use
  Company Number: CHPA2004US01801

PATIENT
  Age: 47 Year
  Sex: Male
  Weight: 90.7 kg

DRUGS (5)
  1. NICOTINE [Suspect]
     Indication: SMOKING CESSATION THERAPY
     Dosage: 21 MG, QD, TRANSDERMAL
     Route: 062
     Dates: start: 20040322, end: 20040326
  2. NICOTINE [Suspect]
     Indication: SMOKING CESSATION THERAPY
     Dosage: 21 MG, QD, TRANSDERMAL
     Route: 062
     Dates: start: 20040329
  3. WELLBUTRIN [Suspect]
     Dosage: 150 MG, QD,
     Dates: start: 20040322
  4. THIOTHIXENE [Concomitant]
  5. BENZTROPEINE [Concomitant]

REACTIONS (5)
  - ANGER [None]
  - DRUG INTERACTION [None]
  - PERSONALITY CHANGE [None]
  - PSYCHOTIC DISORDER [None]
  - SOCIAL AVOIDANT BEHAVIOUR [None]
